FAERS Safety Report 9843770 (Version 1)
Quarter: 2013Q4

REPORT INFORMATION
  Report Type: Spontaneous
  Country: US (occurrence: None)
  Receive Date: 20131223
  Receipt Date: 20131223
  Transmission Date: 20140711
  Serious: Yes (Other)
  Sender: FDA-Public Use
  Company Number: 1000050960

PATIENT
  Sex: Female

DRUGS (2)
  1. LINZESS (LINACLOTIDE) [Suspect]
     Route: 048
  2. MIRALAX [Suspect]
     Dosage: PRN (PRN),
     Route: 048

REACTIONS (2)
  - Diarrhoea [None]
  - Somnolence [None]
